FAERS Safety Report 6983375-9 (Version None)
Quarter: 2010Q3

REPORT INFORMATION
  Report Type: 
  Country: None (occurrence: None)
  Receive Date: 20100914
  Receipt Date: 20100914
  Transmission Date: 20110219
  Serious: Yes (Life-Threatening)
  Sender: FDA-Public Use
  Company Number: None

PATIENT
  Age: 54 Year
  Sex: Female
  Weight: 129.5 kg

DRUGS (1)
  1. IOPAMIDOL [Suspect]
     Indication: SCAN WITH CONTRAST
     Dosage: 100 ML ONCE IV DRIP
     Route: 041
     Dates: start: 20100806, end: 20100806

REACTIONS (3)
  - CONTRAST MEDIA REACTION [None]
  - EYE SWELLING [None]
  - THROAT TIGHTNESS [None]
